FAERS Safety Report 7718920-9 (Version None)
Quarter: 2011Q3

REPORT INFORMATION
  Report Type: 
  Country: None (occurrence: None)
  Receive Date: 20110830
  Receipt Date: 20110819
  Transmission Date: 20111222
  Serious: Yes (Death, Hospitalization)
  Sender: FDA-Public Use
  Company Number: US-GLAXOSMITHKLINE-A0746669A

PATIENT
  Age: 70 Year
  Sex: Male
  Weight: 113.6 kg

DRUGS (5)
  1. GLYBURIDE [Concomitant]
  2. AVANDIA [Suspect]
     Indication: TYPE 2 DIABETES MELLITUS
     Dosage: 4MG PER DAY
     Route: 048
     Dates: start: 20020101, end: 20070101
  3. LISINOPRIL [Concomitant]
  4. SIMAVASTATIN [Concomitant]
  5. PLAVIX [Concomitant]

REACTIONS (4)
  - MYOCARDIAL ISCHAEMIA [None]
  - DEATH [None]
  - MYOCARDIAL INFARCTION [None]
  - CHEST PAIN [None]
